FAERS Safety Report 10145637 (Version 2)
Quarter: 2014Q2

REPORT INFORMATION
  Report Type: Spontaneous
  Country: US (occurrence: US)
  Receive Date: 20140501
  Receipt Date: 20140507
  Transmission Date: 20141212
  Serious: No
  Sender: FDA-Public Use
  Company Number: US-009507513-1404USA014698

PATIENT
  Age: 14 Year
  Sex: Female

DRUGS (2)
  1. PROVENTIL [Suspect]
     Indication: PNEUMONIA
     Dosage: 2 PUFFS FOUR TIMES A DAY
     Route: 055
     Dates: start: 20140425, end: 20140426
  2. PROVENTIL [Suspect]
     Indication: PNEUMOTHORAX
     Dosage: UNK
     Route: 055

REACTIONS (3)
  - Drug ineffective [Unknown]
  - Drug ineffective [Unknown]
  - Drug dose omission [Unknown]
